FAERS Safety Report 12792542 (Version 1)
Quarter: 2016Q3

REPORT INFORMATION
  Report Type: Spontaneous
  Country: US (occurrence: US)
  Receive Date: 20160926
  Receipt Date: 20160926
  Transmission Date: 20161109
  Serious: No
  Sender: FDA-Public Use
  Company Number: None

PATIENT
  Age: 65 Year
  Sex: Female

DRUGS (16)
  1. RITALIN [Concomitant]
     Active Substance: METHYLPHENIDATE HYDROCHLORIDE
  2. ZARXIO [Suspect]
     Active Substance: FILGRASTIM-SNDZ
  3. CYCLOPHASPHAMIDE [Concomitant]
     Active Substance: CYCLOPHOSPHAMIDE
  4. CYMBALTA [Concomitant]
     Active Substance: DULOXETINE HYDROCHLORIDE
  5. WELLBUTRIN [Concomitant]
     Active Substance: BUPROPION HYDROCHLORIDE
  6. PROCARDIA XL [Concomitant]
     Active Substance: NIFEDIPINE
  7. CELEXA [Concomitant]
     Active Substance: CITALOPRAM HYDROBROMIDE
  8. DILAUDID [Concomitant]
     Active Substance: HYDROMORPHONE HYDROCHLORIDE
  9. AMPYRA [Suspect]
     Active Substance: DALFAMPRIDINE
     Indication: MULTIPLE SCLEROSIS
     Route: 048
     Dates: start: 201106
  10. ZYRTEC [Concomitant]
     Active Substance: CETIRIZINE HYDROCHLORIDE
  11. ZOFRAN [Concomitant]
     Active Substance: ONDANSETRON HYDROCHLORIDE
  12. MOBIC [Concomitant]
     Active Substance: MELOXICAM
  13. CYCLOPHOSPHAMIDE. [Concomitant]
     Active Substance: CYCLOPHOSPHAMIDE
  14. DOCETAXEL. [Concomitant]
     Active Substance: DOCETAXEL
  15. VALIUM [Concomitant]
     Active Substance: DIAZEPAM
  16. ONABOTULINUMTOXINA [Suspect]
     Active Substance: ONABOTULINUMTOXINA

REACTIONS (5)
  - Haemoglobin decreased [None]
  - Lymphocyte count decreased [None]
  - Haematocrit decreased [None]
  - Red blood cell count decreased [None]
  - Red cell distribution width increased [None]

NARRATIVE: CASE EVENT DATE: 20160912
